FAERS Safety Report 10802527 (Version 1)
Quarter: 2015Q1

REPORT INFORMATION
  Report Type: Spontaneous
  Country: US (occurrence: US)
  Receive Date: 20150217
  Receipt Date: 20150217
  Transmission Date: 20150721
  Serious: No
  Sender: FDA-Public Use
  Company Number: US-AMARIN PHARMA, INC.-2014AMR000091

PATIENT
  Age: 62 Year
  Sex: Male
  Weight: 96.25 kg

DRUGS (15)
  1. ASPIRIN. [Concomitant]
     Active Substance: ASPIRIN
     Indication: DRUG THERAPY
     Dates: start: 1995
  2. LUNESTA [Concomitant]
     Active Substance: ESZOPICLONE
     Indication: SLEEP DISORDER
  3. GLIMEPIRIDE. [Concomitant]
     Active Substance: GLIMEPIRIDE
  4. METFORMIN [Concomitant]
     Active Substance: METFORMIN HYDROCHLORIDE
     Dosage: 2 CAPSULES IN THE EVENING
  5. LASIX [Concomitant]
     Active Substance: FUROSEMIDE
     Indication: FLUID RETENTION
  6. METOPROLOL [Concomitant]
     Active Substance: METOPROLOL
     Indication: BLOOD PRESSURE
     Dates: start: 1995
  7. PRO AIR INHALER [Concomitant]
     Dosage: 2 PUFFS
  8. GLIMEPIRIDE. [Concomitant]
     Active Substance: GLIMEPIRIDE
     Indication: DIABETES MELLITUS
  9. POTASSIUM [Concomitant]
     Active Substance: POTASSIUM
     Indication: PRODUCT USED FOR UNKNOWN INDICATION
  10. VASCEPA [Suspect]
     Active Substance: ETHYL ICOSAPENTATE
     Indication: BLOOD TRIGLYCERIDES INCREASED
  11. GLIMEPIRIDE. [Concomitant]
     Active Substance: GLIMEPIRIDE
  12. VASCEPA [Suspect]
     Active Substance: ETHYL ICOSAPENTATE
  13. VICODIN [Concomitant]
     Active Substance: ACETAMINOPHEN\HYDROCODONE BITARTRATE
     Indication: PAIN
     Dosage: 5/300 MG
     Dates: start: 1998
  14. METFORMIN [Concomitant]
     Active Substance: METFORMIN HYDROCHLORIDE
     Indication: DIABETES MELLITUS
     Dosage: 1 CAPSULE IN THE MORNING
  15. XANAX [Concomitant]
     Active Substance: ALPRAZOLAM
     Indication: POST-TRAUMATIC STRESS DISORDER
     Dates: start: 1998

REACTIONS (3)
  - Chest discomfort [Recovering/Resolving]
  - Blood glucose increased [Not Recovered/Not Resolved]
  - Arthralgia [Not Recovered/Not Resolved]

NARRATIVE: CASE EVENT DATE: 201403
